FAERS Safety Report 21995714 (Version 1)
Quarter: 2023Q1

REPORT INFORMATION
  Report Type: Spontaneous
  Country: US (occurrence: US)
  Receive Date: 20230215
  Receipt Date: 20230215
  Transmission Date: 20230418
  Serious: No
  Sender: FDA-Public Use
  Company Number: US-BRISTOL-MYERS SQUIBB COMPANY-2023-022420

PATIENT
  Age: 66 Year
  Sex: Male

DRUGS (1)
  1. ORENCIA [Suspect]
     Active Substance: ABATACEPT
     Indication: Rheumatoid arthritis
     Dosage: FREQ: INFUSE 750 MG INTRAVENOUSLY AT WEEK 0, 2 , 4, THEN EVERY 4 WEEKS THEREAFTER
     Route: 042
     Dates: start: 202302

REACTIONS (1)
  - Drug ineffective [Unknown]
